FAERS Safety Report 11886548 (Version 1)
Quarter: 2016Q1

REPORT INFORMATION
  Report Type: Spontaneous
  Country: US (occurrence: US)
  Receive Date: 20160104
  Receipt Date: 20160104
  Transmission Date: 20160526
  Serious: No
  Sender: FDA-Public Use
  Company Number: US-PFIZER INC-2015433538

PATIENT
  Sex: Female

DRUGS (7)
  1. INDOCIN [Suspect]
     Active Substance: INDOMETHACIN\INDOMETHACIN SODIUM
     Dosage: UNK
  2. FELDENE [Suspect]
     Active Substance: PIROXICAM
     Dosage: UNK
  3. LINCOMYCIN. [Suspect]
     Active Substance: LINCOMYCIN
     Dosage: UNK
  4. CLINDAMYCIN [Suspect]
     Active Substance: CLINDAMYCIN\CLINDAMYCIN PHOSPHATE
     Dosage: UNK
  5. ADVAIR HFA [Suspect]
     Active Substance: FLUTICASONE PROPIONATE\SALMETEROL XINAFOATE
     Dosage: UNK
  6. FLEXERIL [Suspect]
     Active Substance: CYCLOBENZAPRINE HYDROCHLORIDE
     Dosage: UNK
  7. AZITHROMYCIN ANHYDROUS. [Suspect]
     Active Substance: AZITHROMYCIN ANHYDROUS
     Dosage: UNK

REACTIONS (1)
  - Drug hypersensitivity [Unknown]
